FAERS Safety Report 10545039 (Version 2)
Quarter: 2014Q4

REPORT INFORMATION
  Report Type: Spontaneous
  Country: JP (occurrence: JP)
  Receive Date: 20141027
  Receipt Date: 20141107
  Transmission Date: 20150529
  Serious: Yes (Death, Hospitalization)
  Sender: FDA-Public Use
  Company Number: JP-ASTRAZENECA-2014SE81252

PATIENT
  Age: 62 Year
  Sex: Male

DRUGS (10)
  1. VANCOMYCIN HYDROCHLORIDE. [Concomitant]
     Active Substance: VANCOMYCIN HYDROCHLORIDE
     Dates: start: 20110816, end: 20110821
  2. LEVOFLOXACIN HEMIHYDRATE [Concomitant]
     Active Substance: LEVOFLOXACIN
     Dates: start: 20110906
  3. IMIPENEM HYDRATE_CILASTIN SODIUM [Concomitant]
     Dates: start: 20110806
  4. TOBRAMYCIN. [Concomitant]
     Active Substance: TOBRAMYCIN
     Dates: start: 20110906, end: 20110913
  5. GENTAMICIN SULFATE. [Concomitant]
     Active Substance: GENTAMICIN SULFATE
     Dates: start: 20110914, end: 20110914
  6. MEROPENEM. [Suspect]
     Active Substance: MEROPENEM
     Indication: PNEUMONIA
     Route: 042
     Dates: start: 20110803, end: 20110805
  7. TEICOPLANIN [Concomitant]
     Active Substance: TEICOPLANIN
     Dates: start: 20110822, end: 20110826
  8. MEROPENEM. [Suspect]
     Active Substance: MEROPENEM
     Indication: PNEUMONIA
     Route: 042
     Dates: start: 20110816, end: 20110905
  9. CLINDAMYCIN HYDROCHLORIDE. [Concomitant]
     Active Substance: CLINDAMYCIN HYDROCHLORIDE
     Dates: start: 20110806
  10. CEFAZOLIN SODIUM. [Concomitant]
     Active Substance: CEFAZOLIN SODIUM
     Route: 042
     Dates: start: 20110728, end: 20110802

REACTIONS (14)
  - Pneumonia [Fatal]
  - Pulmonary haemorrhage [Unknown]
  - Liver function test abnormal [Unknown]
  - White blood cell count increased [Unknown]
  - Activated partial thromboplastin time prolonged [Unknown]
  - Prothrombin time prolonged [Unknown]
  - Hypoalbuminaemia [Unknown]
  - Death [Fatal]
  - Klebsiella infection [Fatal]
  - Tracheal haemorrhage [Unknown]
  - C-reactive protein increased [Unknown]
  - Renal impairment [Unknown]
  - Anaemia [Unknown]
  - Cardiac arrest [Unknown]
